FAERS Safety Report 5463315-4 (Version None)
Quarter: 2007Q3

REPORT INFORMATION
  Report Type: 
  Country: None (occurrence: None)
  Receive Date: 20070920
  Receipt Date: 20070910
  Transmission Date: 20080115
  Serious: Yes (Hospitalization)
  Sender: FDA-Public Use
  Company Number: PHHO2002CN03751

PATIENT
  Age: 71 Year
  Sex: Male
  Weight: 55 kg

DRUGS (6)
  1. ENTACAPONE VS PLACEBO [Suspect]
     Indication: PARKINSON'S DISEASE
     Dosage: 800 MG, QD
     Route: 048
     Dates: start: 20020420, end: 20020425
  2. MADOPAR [Suspect]
     Indication: PARKINSON'S DISEASE
     Dosage: 125 MG, QD
     Dates: start: 19840401
  3. PARLODEL [Concomitant]
     Indication: PARKINSON'S DISEASE
     Dosage: 12.5 MG, QID
  4. AMANTADINE HCL [Suspect]
     Indication: PARKINSON'S DISEASE
     Dosage: .1, BID
     Dates: start: 19840501
  5. SINEMET CR [Suspect]
     Dosage: 250 MG, TID
     Dates: start: 19910301
  6. ARTANE [Suspect]
     Dosage: 2 MG, TID
     Dates: start: 20010701

REACTIONS (7)
  - DELUSION [None]
  - HALLUCINATION [None]
  - INSOMNIA [None]
  - MUSCLE RIGIDITY [None]
  - PYREXIA [None]
  - SPEECH DISORDER [None]
  - WHITE BLOOD CELL COUNT INCREASED [None]
